FAERS Safety Report 6524581-7 (Version None)
Quarter: 2010Q1

REPORT INFORMATION
  Report Type: 
  Country: None (occurrence: None)
  Receive Date: 20100104
  Receipt Date: 20091221
  Transmission Date: 20100710
  Serious: Yes (Other)
  Sender: FDA-Public Use
  Company Number: PHHY2009FR58392

PATIENT
  Sex: Female

DRUGS (5)
  1. VOLTAREN [Suspect]
     Dosage: 75 MG, BID
     Dates: end: 20091221
  2. VALSARTAN AND HYDROCHLOROTHIAZIDE [Concomitant]
     Route: 048
  3. ISOPTIN [Concomitant]
     Route: 048
  4. METEOSPASMYL [Concomitant]
     Route: 048
  5. STRESAM [Concomitant]
     Route: 048

REACTIONS (3)
  - ABDOMINAL PAIN [None]
  - ANORECTAL DISCOMFORT [None]
  - FAECES DISCOLOURED [None]
